FAERS Safety Report 6764758-9 (Version None)
Quarter: 2010Q2

REPORT INFORMATION
  Report Type: 
  Country: None (occurrence: None)
  Receive Date: 20100610
  Receipt Date: 20100530
  Transmission Date: 20101027
  Serious: No
  Sender: FDA-Public Use
  Company Number: US-B.I. PHARMACEUTICALS,INC./RIDGEFIELD-2010-BP-06166BP

PATIENT
  Age: 83 Year
  Sex: Female

DRUGS (9)
  1. ZANTAC 150 [Suspect]
     Indication: HIATUS HERNIA
     Dosage: 150 MG
     Route: 048
     Dates: start: 20100525
  2. CALCIUM CARBONATE [Suspect]
     Indication: BLOOD CALCIUM
  3. PLAVIX [Concomitant]
     Indication: STENT PLACEMENT
     Dosage: 75 MG
     Route: 048
     Dates: start: 20060101
  4. CRESTOR [Concomitant]
     Indication: BLOOD CHOLESTEROL
     Dosage: 10 MG
     Route: 048
     Dates: start: 20060101
  5. BENAZAPRIL [Concomitant]
     Indication: BLOOD PRESSURE
     Dosage: 10 MG
     Route: 048
     Dates: start: 20060101
  6. PROPRANOLOL [Concomitant]
     Dosage: 40 MG
     Route: 048
     Dates: start: 20000101
  7. HCTZ [Concomitant]
     Indication: BLOOD PRESSURE
     Dosage: 25 MG
     Route: 048
     Dates: start: 20000101
  8. MTV [Concomitant]
     Indication: SUPPLEMENTATION THERAPY
     Dates: start: 20060101
  9. TYLENOL [Concomitant]
     Indication: PAIN
     Dosage: 200 MG
     Route: 048

REACTIONS (2)
  - ANORECTAL DISCOMFORT [None]
  - DIARRHOEA [None]
